FAERS Safety Report 21345517 (Version 1)
Quarter: 2022Q3

REPORT INFORMATION
  Report Type: Spontaneous
  Country: GB (occurrence: GB)
  Receive Date: 20220916
  Receipt Date: 20220916
  Transmission Date: 20221027
  Serious: Yes (Other)
  Sender: FDA-Public Use
  Company Number: None

PATIENT
  Age: 52 Year
  Sex: Male
  Weight: 100 kg

DRUGS (3)
  1. TRIMETHOPRIM [Suspect]
     Active Substance: TRIMETHOPRIM
     Indication: Product used for unknown indication
     Dosage: 80 MG, END DATE: NOT ASKED
     Dates: start: 20210305
  2. SULFUR [Suspect]
     Active Substance: SULFUR
     Indication: Product used for unknown indication
     Dosage: END DATE: NOT ASKED
     Route: 048
     Dates: start: 20220901
  3. SULFAMETHOXAZOLE [Suspect]
     Active Substance: SULFAMETHOXAZOLE
     Indication: Product used for unknown indication
     Dosage: 400 MG, END DATE: NOT ASKED
     Dates: start: 20210305

REACTIONS (3)
  - Furuncle [Not Recovered/Not Resolved]
  - Rash pruritic [Not Recovered/Not Resolved]
  - Drug hypersensitivity [Not Recovered/Not Resolved]

NARRATIVE: CASE EVENT DATE: 20220901
